FAERS Safety Report 6198571-0 (Version None)
Quarter: 2009Q2

REPORT INFORMATION
  Report Type: 
  Country: None (occurrence: None)
  Receive Date: 20090521
  Receipt Date: 20090515
  Transmission Date: 20091009
  Serious: No
  Sender: FDA-Public Use
  Company Number: US-B.I. PHARMACEUTICALS,INC./RIDGEFIELD-2009-BP-05632BP

PATIENT
  Sex: Male

DRUGS (3)
  1. ZANTAC 150 [Suspect]
     Indication: HYPERCHLORHYDRIA
     Route: 048
     Dates: start: 20090201, end: 20090503
  2. ZANTAC 150 [Suspect]
     Indication: GASTROOESOPHAGEAL REFLUX DISEASE
  3. ZANTAC 150 [Suspect]
     Indication: FLATULENCE

REACTIONS (2)
  - ASTHENIA [None]
  - DIARRHOEA [None]
